FAERS Safety Report 7170012-6 (Version None)
Quarter: 2010Q4

REPORT INFORMATION
  Report Type: 
  Country: None (occurrence: None)
  Receive Date: 20101217
  Receipt Date: 20091218
  Transmission Date: 20110411
  Serious: Yes (Hospitalization)
  Sender: FDA-Public Use
  Company Number: JP-BAYER-200912575BYL

PATIENT
  Sex: Male
  Weight: 63 kg

DRUGS (7)
  1. SORAFENIB (RAF KINASE INHIBITOR) [Suspect]
     Dosage: 400 MG, BID
     Route: 048
     Dates: start: 20090127, end: 20090201
  2. SORAFENIB (RAF KINASE INHIBITOR) [Suspect]
     Dosage: 400 MG, QD
     Route: 048
     Dates: start: 20090202, end: 20090203
  3. SORAFENIB (RAF KINASE INHIBITOR) [Suspect]
     Dosage: 400 MG, QD
     Route: 048
     Dates: start: 20090206, end: 20090208
  4. SORAFENIB (RAF KINASE INHIBITOR) [Suspect]
     Dosage: 800 MG, QD
     Route: 048
     Dates: start: 20090209, end: 20090223
  5. SORAFENIB (RAF KINASE INHIBITOR) [Suspect]
     Dosage: 400 MG, QD
     Route: 048
     Dates: start: 20090310, end: 20090407
  6. SORAFENIB (RAF KINASE INHIBITOR) [Suspect]
     Dosage: 800 MG, QD
     Route: 048
     Dates: start: 20090407, end: 20090714
  7. KERATINAMIN [Concomitant]
     Route: 061
     Dates: start: 20090127, end: 20090224

REACTIONS (6)
  - ALANINE AMINOTRANSFERASE INCREASED [None]
  - ALOPECIA [None]
  - ASPARTATE AMINOTRANSFERASE INCREASED [None]
  - HEPATIC FUNCTION ABNORMAL [None]
  - HYPERTENSION [None]
  - PALMAR-PLANTAR ERYTHRODYSAESTHESIA SYNDROME [None]
